FAERS Safety Report 10160873 (Version 1)
Quarter: 2014Q2

REPORT INFORMATION
  Report Type: Spontaneous
  Country: GB (occurrence: GB)
  Receive Date: 20140508
  Receipt Date: 20140508
  Transmission Date: 20141212
  Serious: Yes (Other)
  Sender: FDA-Public Use
  Company Number: PHHY2014GB053610

PATIENT
  Age: 30 Year
  Sex: Female
  Weight: 88.44 kg

DRUGS (2)
  1. METRONIDAZOLE [Suspect]
     Indication: TOOTH INFECTION
     Dosage: 400 MG
     Route: 048
     Dates: start: 20140416, end: 20140420
  2. CODEINE [Concomitant]

REACTIONS (2)
  - Sensation of foreign body [Recovering/Resolving]
  - Nausea [Recovered/Resolved]
